FAERS Safety Report 23482195 (Version 7)
Quarter: 2025Q1

REPORT INFORMATION
  Report Type: Spontaneous
  Country: US (occurrence: US)
  Receive Date: 20240205
  Receipt Date: 20250226
  Transmission Date: 20250409
  Serious: Yes (Hospitalization)
  Sender: PFIZER
  Company Number: US-PFIZER INC-PV202400014834

PATIENT
  Age: 74 Year
  Sex: Female
  Weight: 97.506 kg

DRUGS (5)
  1. IBRANCE [Suspect]
     Active Substance: PALBOCICLIB
     Indication: Breast cancer recurrent
     Dates: start: 202306
  2. IBRANCE [Suspect]
     Active Substance: PALBOCICLIB
  3. IBRANCE [Suspect]
     Active Substance: PALBOCICLIB
     Route: 048
  4. FULVESTRANT [Concomitant]
     Active Substance: FULVESTRANT
     Dosage: 125 MG EACH HIP MONTHLY
     Route: 030
     Dates: end: 202304
  5. FULVESTRANT [Concomitant]
     Active Substance: FULVESTRANT
     Dates: start: 202306

REACTIONS (3)
  - Vomiting [Unknown]
  - Skin odour abnormal [Recovered/Resolved]
  - Alopecia [Recovering/Resolving]
